FAERS Safety Report 5843671-5 (Version None)
Quarter: 2008Q3

REPORT INFORMATION
  Report Type: 
  Country: None (occurrence: None)
  Receive Date: 20080811
  Receipt Date: 20080731
  Transmission Date: 20090109
  Serious: Yes (Hospitalization)
  Sender: FDA-Public Use
  Company Number: RENA-1000204

PATIENT
  Age: 61 Year
  Sex: Female

DRUGS (2)
  1. RENAGEL [Suspect]
     Indication: HYPERPHOSPHATAEMIA
     Dosage: 2.75 G, ORAL
     Route: 048
     Dates: end: 20080729
  2. LOXONIN (LOXOPROFEN SODIUM) UNKNOWN [Suspect]
     Indication: DRUG USE FOR UNKNOWN INDICATION

REACTIONS (1)
  - DUODENAL PERFORATION [None]
